FAERS Safety Report 13496831 (Version 4)
Quarter: 2017Q2

REPORT INFORMATION
  Report Type: Report from Study
  Country: CA (occurrence: CA)
  Receive Date: 20170428
  Receipt Date: 20170610
  Transmission Date: 20170830
  Serious: Yes (Death, Life-Threatening, Hospitalization, Other)
  Sender: FDA-Public Use
  Company Number: CA-AMGEN-CANCT2017064386

PATIENT
  Age: 15 Year
  Sex: Female
  Weight: 84.9 kg

DRUGS (4)
  1. BLINATUMOMAB [Suspect]
     Active Substance: BLINATUMOMAB
     Dosage: 29 MUG, QD
     Route: 042
     Dates: start: 20161230, end: 20170106
  2. BLINATUMOMAB [Suspect]
     Active Substance: BLINATUMOMAB
     Indication: PRECURSOR B-LYMPHOBLASTIC LYMPHOMA RECURRENT
     Dosage: 9.65 MUG, QD
     Route: 042
     Dates: start: 20161223, end: 20161229
  3. PLATELETS [Concomitant]
     Active Substance: HUMAN PLATELET, ALLOGENIC
     Dosage: UNK UNK, AS NECESSARY
     Dates: start: 20161219
  4. VITAMIN K [Concomitant]
     Active Substance: PHYTONADIONE
     Dosage: UNK UNK, AS NECESSARY
     Dates: start: 20161219

REACTIONS (25)
  - Epistaxis [Recovered/Resolved]
  - Blood bilirubin increased [Unknown]
  - Blood lactate dehydrogenase increased [Unknown]
  - Blood lactic acid increased [Unknown]
  - Hypoxia [Not Recovered/Not Resolved]
  - Sinus bradycardia [Unknown]
  - Troponin I increased [Unknown]
  - Capillary leak syndrome [Not Recovered/Not Resolved]
  - Disseminated intravascular coagulation [Unknown]
  - Gamma-glutamyltransferase increased [Unknown]
  - Hypothermia [Unknown]
  - Acute respiratory distress syndrome [Unknown]
  - Embolism [Unknown]
  - Acidosis [Unknown]
  - Cardiac failure [Fatal]
  - Acute kidney injury [Unknown]
  - Hypophosphataemia [Recovered/Resolved]
  - Lipase increased [Unknown]
  - Aspartate aminotransferase increased [Unknown]
  - Multiple organ dysfunction syndrome [Unknown]
  - Hypotension [Unknown]
  - Activated partial thromboplastin time prolonged [Unknown]
  - Alanine aminotransferase increased [Unknown]
  - Blood creatinine increased [Unknown]
  - Hypokalaemia [Unknown]

NARRATIVE: CASE EVENT DATE: 20161224
